FAERS Safety Report 5506759-4 (Version None)
Quarter: 2007Q4

REPORT INFORMATION
  Report Type: 
  Country: None (occurrence: None)
  Receive Date: 20071105
  Receipt Date: 20071029
  Transmission Date: 20080405
  Serious: Yes (Other)
  Sender: FDA-Public Use
  Company Number: IT-ELI_LILLY_AND_COMPANY-IT200710007499

PATIENT
  Sex: Female

DRUGS (2)
  1. HUMALOG [Suspect]
     Indication: DIABETES MELLITUS
     Dosage: 28 IU, DAILY (1/D)
     Route: 058
     Dates: start: 19990101
  2. LEVEMIR [Concomitant]
     Indication: DIABETES MELLITUS
     Dosage: 14 IU, DAILY (1/D)
     Route: 058
     Dates: start: 19990101

REACTIONS (2)
  - HYPOGLYCAEMIA [None]
  - PSYCHOMOTOR SKILLS IMPAIRED [None]
